FAERS Safety Report 5151602-9 (Version None)
Quarter: 2006Q4

REPORT INFORMATION
  Report Type: 
  Country: None (occurrence: None)
  Receive Date: 20061115
  Receipt Date: 20060302
  Transmission Date: 20070319
  Serious: No
  Sender: FDA-Public Use
  Company Number: US-BRISTOL-MYERS SQUIBB COMPANY-13301726

PATIENT
  Age: 40 Year
  Sex: Female
  Weight: 48 kg

DRUGS (8)
  1. SUSTIVA [Suspect]
     Indication: ACQUIRED IMMUNODEFICIENCY SYNDROME
     Dates: start: 20040701
  2. TRUVADA [Concomitant]
  3. WELLBUTRIN XL [Concomitant]
  4. TEMAZEPAM [Concomitant]
  5. FIORICET [Concomitant]
  6. STADOL [Concomitant]
  7. NORCO [Concomitant]
  8. ADDERALL 10 [Concomitant]

REACTIONS (2)
  - ABNORMAL DREAMS [None]
  - MENORRHAGIA [None]
